FAERS Safety Report 18260961 (Version 1)
Quarter: 2020Q3

REPORT INFORMATION
  Report Type: Spontaneous
  Country: US (occurrence: US)
  Receive Date: 20200914
  Receipt Date: 20200914
  Transmission Date: 20201103
  Serious: No
  Sender: FDA-Public Use
  Company Number: US-SA-2020SA246157

PATIENT

DRUGS (1)
  1. DUPIXENT [Suspect]
     Active Substance: DUPILUMAB
     Indication: CHRONIC SINUSITIS
     Dosage: 300 MG, QOW
     Route: 058

REACTIONS (5)
  - Eye discharge [Unknown]
  - Eyelid margin crusting [Unknown]
  - Product use in unapproved indication [Unknown]
  - Foreign body in eye [Unknown]
  - Ocular discomfort [Unknown]
